FAERS Safety Report 8622843-0 (Version None)
Quarter: 2012Q3

REPORT INFORMATION
  Report Type: 
  Country: None (occurrence: None)
  Receive Date: 20120827
  Receipt Date: 20120821
  Transmission Date: 20120928
  Serious: Yes (Hospitalization, Disabling, Other)
  Sender: FDA-Public Use
  Company Number: PHHY2012JP055869

PATIENT
  Sex: Female
  Weight: 35 kg

DRUGS (7)
  1. LYRICA [Concomitant]
     Dosage: 150 MG, UNK
     Route: 048
  2. ZOMETA [Suspect]
     Dosage: UNK UKN, UNK
     Route: 041
     Dates: start: 20120701
  3. ANTIBIOTICS [Concomitant]
  4. AROMASIN [Concomitant]
     Indication: BREAST CANCER
     Dosage: 25 MG, UNK
     Route: 048
  5. ZOMETA [Suspect]
     Indication: BREAST CANCER
     Dosage: UNK UKN, UNK
     Route: 041
     Dates: start: 20100701, end: 20110801
  6. ARICEPT [Concomitant]
     Indication: PARKINSON'S DISEASE
     Dosage: 10 MG, UNK
     Route: 048
  7. GRAMALIL [Concomitant]
     Indication: PARKINSON'S DISEASE
     Dosage: 50 MG, UNK
     Route: 048

REACTIONS (18)
  - LOOSE TOOTH [None]
  - OSTEONECROSIS OF JAW [None]
  - EXPOSED BONE IN JAW [None]
  - ORAL MUCOSAL ERYTHEMA [None]
  - ORAL CANDIDIASIS [None]
  - CHEILITIS [None]
  - OSTEOLYSIS [None]
  - POOR PERSONAL HYGIENE [None]
  - GINGIVAL INFECTION [None]
  - SWELLING [None]
  - BONE PAIN [None]
  - DYSLALIA [None]
  - PERIODONTITIS [None]
  - ORAL HERPES [None]
  - TOOTH LOSS [None]
  - WOUND COMPLICATION [None]
  - EATING DISORDER [None]
  - DYSARTHRIA [None]
